FAERS Safety Report 6904325-7 (Version None)
Quarter: 2010Q3

REPORT INFORMATION
  Report Type: 
  Country: None (occurrence: None)
  Receive Date: 20100804
  Receipt Date: 20090423
  Transmission Date: 20110219
  Serious: No
  Sender: FDA-Public Use
  Company Number: US-PFIZER INC-2009182442

PATIENT
  Sex: Female
  Weight: 77.1 kg

DRUGS (4)
  1. LYRICA [Suspect]
     Indication: FIBROMYALGIA
     Dosage: 225 MG, 1X/DAY
     Route: 048
     Dates: start: 20090101
  2. LYRICA [Suspect]
     Indication: PAIN
  3. ZOLOFT [Concomitant]
     Dosage: 100 MG, UNK
  4. WELLBUTRIN [Concomitant]
     Dosage: 300 MG, UNK

REACTIONS (5)
  - DIZZINESS [None]
  - EMOTIONAL DISORDER [None]
  - FIBROMYALGIA [None]
  - SOMNOLENCE [None]
  - WITHDRAWAL SYNDROME [None]
